FAERS Safety Report 4502072-2 (Version None)
Quarter: 2004Q4

REPORT INFORMATION
  Report Type: 
  Country: None (occurrence: None)
  Receive Date: 20041116
  Receipt Date: 20040312
  Transmission Date: 20050328
  Serious: Yes (Hospitalization)
  Sender: FDA-Public Use
  Company Number: CH-MERCK-0403CHE00022

PATIENT
  Age: 80 Year
  Sex: Male
  Weight: 100 kg

DRUGS (13)
  1. VIOXX [Suspect]
     Indication: ARTHRALGIA
     Route: 048
     Dates: start: 20040125, end: 20040206
  2. ACENOCOUMAROL [Suspect]
     Indication: CARDIAC FAILURE
     Route: 048
     Dates: end: 20040306
  3. METHYLPREDNISOLONE ACETATE [Suspect]
     Indication: BACK PAIN
     Route: 051
     Dates: start: 20031101, end: 20031231
  4. METHYLPREDNISOLONE ACETATE [Suspect]
     Indication: NEUROPATHY
     Route: 051
     Dates: start: 20031101, end: 20031231
  5. DIGOXIN [Concomitant]
     Indication: CARDIAC FAILURE
     Route: 048
  6. ENALAPRIL MALEATE [Concomitant]
     Indication: CARDIAC FAILURE
     Route: 048
  7. SPIRONOLACTONE [Concomitant]
     Indication: CARDIAC FAILURE
     Route: 048
  8. TORSEMIDE [Concomitant]
     Indication: CARDIAC FAILURE
     Route: 048
     Dates: start: 20040115, end: 20040306
  9. LEVOTHYROXINE SODIUM [Concomitant]
     Indication: HYPOTHYROIDISM
     Route: 048
  10. GLIMEPIRIDE [Concomitant]
     Indication: DIABETES MELLITUS NON-INSULIN-DEPENDENT
     Route: 048
     Dates: end: 20040306
  11. NITROGLYCERIN [Concomitant]
     Indication: CARDIAC FAILURE
     Route: 048
  12. MOLSIDOMINE [Concomitant]
     Indication: CARDIAC FAILURE
     Route: 048
  13. CLONAZEPAM [Concomitant]
     Indication: NEUROPATHY
     Route: 048
     Dates: start: 20040115

REACTIONS (3)
  - ANAEMIA [None]
  - DYSPNOEA [None]
  - GASTRITIS EROSIVE [None]
